FAERS Safety Report 4422930-7 (Version None)
Quarter: 2004Q3

REPORT INFORMATION
  Report Type: 
  Country: None (occurrence: None)
  Receive Date: 20040811
  Receipt Date: 20040730
  Transmission Date: 20050211
  Serious: Yes (Other)
  Sender: FDA-Public Use
  Company Number: ES-AMGEN-UK085010

PATIENT
  Sex: Male
  Weight: 76 kg

DRUGS (8)
  1. NEULASTA [Suspect]
     Indication: DRUG USE FOR UNKNOWN INDICATION
     Dates: start: 20040702
  2. DEXAMETHASONE [Suspect]
     Route: 048
     Dates: start: 20040708, end: 20040711
  3. COZAAR [Concomitant]
  4. ATARAX [Concomitant]
  5. ALLOPURINOL TAB [Concomitant]
  6. SEPTRA [Concomitant]
  7. ACFOL [Concomitant]
  8. HYDROXYPROPYL CELLULOSE OPHTHALMIC INSERT [Concomitant]

REACTIONS (3)
  - HYPOCOAGULABLE STATE [None]
  - LEUKOCYTOSIS [None]
  - WOUND INFECTION [None]
